FAERS Safety Report 6570430-0 (Version None)
Quarter: 2010Q1

REPORT INFORMATION
  Report Type: 
  Country: None (occurrence: None)
  Receive Date: 20100204
  Receipt Date: 20090417
  Transmission Date: 20100710
  Serious: No
  Sender: FDA-Public Use
  Company Number: A0779416A

PATIENT
  Sex: Female

DRUGS (2)
  1. ARIXTRA [Suspect]
     Dosage: 7.5MG PER DAY
     Route: 058
     Dates: start: 20080101
  2. UNKNOWN [Concomitant]

REACTIONS (1)
  - INJECTION SITE PAIN [None]
